FAERS Safety Report 7192241-8 (Version None)
Quarter: 2010Q4

REPORT INFORMATION
  Report Type: 
  Country: None (occurrence: None)
  Receive Date: 20101223
  Receipt Date: 20101210
  Transmission Date: 20110411
  Serious: Yes (Hospitalization)
  Sender: FDA-Public Use
  Company Number: GXKR2010HR14042

PATIENT
  Age: 64 Year
  Sex: Female

DRUGS (2)
  1. ASPIRIN [Suspect]
     Route: 065
  2. CLOPIDOGREL BISULFATE [Suspect]
     Route: 065

REACTIONS (4)
  - CONFUSIONAL STATE [None]
  - JOINT INSTABILITY [None]
  - SUBDURAL HAEMATOMA [None]
  - URINARY INCONTINENCE [None]
